FAERS Safety Report 5423672-1 (Version None)
Quarter: 2007Q3

REPORT INFORMATION
  Report Type: 
  Country: None (occurrence: None)
  Receive Date: 20070823
  Receipt Date: 20070817
  Transmission Date: 20080115
  Serious: Yes (Other)
  Sender: FDA-Public Use
  Company Number: B0477781A

PATIENT
  Age: 66 Year
  Sex: Male

DRUGS (2)
  1. ROSIGLITAZONE MALEATE [Suspect]
     Route: 048
     Dates: end: 20070606
  2. STATINS [Concomitant]

REACTIONS (1)
  - RHABDOMYOLYSIS [None]
